FAERS Safety Report 19439050 (Version 1)
Quarter: 2021Q2

REPORT INFORMATION
  Report Type: Spontaneous
  Country: US (occurrence: US)
  Receive Date: 20210618
  Receipt Date: 20210618
  Transmission Date: 20210717
  Serious: Yes (Death)
  Sender: FDA-Public Use
  Company Number: US-ENDO PHARMACEUTICALS INC-2021-002925

PATIENT
  Age: 41 Year
  Sex: Male

DRUGS (9)
  1. RANITIDINE. [Suspect]
     Active Substance: RANITIDINE
     Indication: DYSPEPSIA
     Dosage: 15 MG/ML, UNKNOWN
     Dates: start: 201203, end: 201503
  2. RANITIDINE HYDROCHLORIDE. [Suspect]
     Active Substance: RANITIDINE HYDROCHLORIDE
     Indication: DYSPEPSIA
     Dosage: UNK UNKNOWN, DAILY
     Route: 065
     Dates: start: 200501, end: 201801
  3. ZANTAC [Suspect]
     Active Substance: RANITIDINE HYDROCHLORIDE
     Indication: DYSPEPSIA
     Dosage: 15 MG/ML, WEEKLY
     Route: 065
     Dates: start: 200501, end: 201810
  4. RANITIDINE. [Suspect]
     Active Substance: RANITIDINE
     Indication: DYSPEPSIA
     Dosage: 15 MG/ML, UNKNOWN
     Route: 065
     Dates: start: 200701, end: 201006
  5. RANITIDINE. [Suspect]
     Active Substance: RANITIDINE
     Indication: DYSPEPSIA
     Dosage: UNK UNKNOWN, DAILY
     Route: 065
     Dates: start: 200501, end: 201801
  6. ZANTAC [Suspect]
     Active Substance: RANITIDINE HYDROCHLORIDE
     Indication: DYSPEPSIA
     Dosage: 75 MG, DAILY
     Route: 065
     Dates: start: 200501, end: 201810
  7. RANITIDINE. [Suspect]
     Active Substance: RANITIDINE
     Indication: DYSPEPSIA
     Dosage: 1 MG/ML, UNKNOWN
     Route: 065
     Dates: start: 201506, end: 201506
  8. RANITIDINE. [Suspect]
     Active Substance: RANITIDINE
     Indication: DYSPEPSIA
     Dosage: 50 MG/ML, UNKNOWN
     Route: 065
     Dates: start: 201001, end: 201410
  9. ZANTAC [Suspect]
     Active Substance: RANITIDINE HYDROCHLORIDE
     Indication: DYSPEPSIA
     Dosage: 75 MG, DAILY
     Route: 065
     Dates: start: 200501, end: 201810

REACTIONS (2)
  - Gastrointestinal carcinoma [Fatal]
  - Small intestine carcinoma [Fatal]

NARRATIVE: CASE EVENT DATE: 20171001
